FAERS Safety Report 7383309-1 (Version None)
Quarter: 2011Q1

REPORT INFORMATION
  Report Type: 
  Country: None (occurrence: None)
  Receive Date: 20110330
  Receipt Date: 20110328
  Transmission Date: 20110831
  Serious: Yes (Death)
  Sender: FDA-Public Use
  Company Number: KR-SANOFI-AVENTIS-2011SA018617

PATIENT

DRUGS (1)
  1. TAXOTERE [Suspect]

REACTIONS (1)
  - DEATH [None]
